FAERS Safety Report 6895643-X (Version None)
Quarter: 2010Q3

REPORT INFORMATION
  Report Type: 
  Country: None (occurrence: None)
  Receive Date: 20100802
  Receipt Date: 20100721
  Transmission Date: 20110219
  Serious: Yes (Hospitalization)
  Sender: FDA-Public Use
  Company Number: DE-AMGEN-US406473

PATIENT
  Sex: Male

DRUGS (3)
  1. ENBREL [Suspect]
     Indication: PSORIATIC ARTHROPATHY
     Route: 058
     Dates: start: 20081207, end: 20100201
  2. LANTAREL [Suspect]
     Indication: PSORIATIC ARTHROPATHY
     Route: 058
     Dates: start: 20071001, end: 20100301
  3. CALCILAC [Concomitant]
     Dosage: UNKNOWN

REACTIONS (6)
  - GASTROENTERITIS CLOSTRIDIAL [None]
  - HYPERTENSION [None]
  - HYPOCALCAEMIA [None]
  - HYPOKALAEMIA [None]
  - HYPONATRAEMIA [None]
  - PNEUMOCYSTIS JIROVECI PNEUMONIA [None]
